FAERS Safety Report 4469061-8 (Version None)
Quarter: 2004Q4

REPORT INFORMATION
  Report Type: 
  Country: None (occurrence: None)
  Receive Date: 20041001
  Receipt Date: 20040917
  Transmission Date: 20050328
  Serious: Yes (Other)
  Sender: FDA-Public Use
  Company Number: DEU-2004-0000887

PATIENT
  Age: 28 Year
  Sex: Female

DRUGS (9)
  1. OXYCODONE HCL [Suspect]
     Indication: PAIN
     Dosage: 20 MG, BID, ORAL
     Route: 048
  2. TRAMADOL HCL [Suspect]
     Indication: PAIN
     Dosage: 200 MG, TID
  3. TERBUTALINE SULFATE [Concomitant]
  4. GUAIFENESIN (GUAIFENESIN) [Concomitant]
  5. SPIRO COMP (IFUROSEMIDE, SPIRONOLACTONE) [Concomitant]
  6. VERAPAMIL HCL [Concomitant]
  7. CLONIDINE [Concomitant]
  8. DIURETICS [Concomitant]
  9. CORTISONE (CORTISONE) [Concomitant]

REACTIONS (8)
  - APATHY [None]
  - CRYING [None]
  - DRUG WITHDRAWAL SYNDROME [None]
  - FEAR [None]
  - HYPERSOMNIA [None]
  - INFLUENZA LIKE ILLNESS [None]
  - MALAISE [None]
  - MEDICATION ERROR [None]
